FAERS Safety Report 9629422 (Version 1)
Quarter: 2013Q4

REPORT INFORMATION
  Report Type: Spontaneous
  Country: US (occurrence: US)
  Receive Date: 20131017
  Receipt Date: 20131017
  Transmission Date: 20140711
  Serious: No
  Sender: FDA-Public Use
  Company Number: US-ASTRAZENECA-2013SE56909

PATIENT
  Age: 71 Year
  Sex: Male
  Weight: 113.4 kg

DRUGS (6)
  1. CRESTOR [Suspect]
     Indication: VASCULAR GRAFT
     Route: 048
     Dates: start: 2007
  2. CRESTOR [Suspect]
     Indication: CAROTID ARTERY STENT INSERTION
     Route: 048
     Dates: start: 2007
  3. CRESTOR [Suspect]
     Indication: VASCULAR GRAFT
     Route: 048
  4. CRESTOR [Suspect]
     Indication: CAROTID ARTERY STENT INSERTION
     Route: 048
  5. PLAVIX [Concomitant]
     Indication: CARDIAC DISORDER
     Dosage: UNKNOWN
  6. BUSTYLIC [Concomitant]
     Indication: CARDIAC DISORDER
     Dosage: UNKNOWN

REACTIONS (2)
  - Muscle spasms [Recovered/Resolved]
  - Intentional drug misuse [Not Recovered/Not Resolved]
